APPROVED DRUG PRODUCT: PROPRANOLOL HYDROCHLORIDE
Active Ingredient: PROPRANOLOL HYDROCHLORIDE
Strength: 40MG
Dosage Form/Route: TABLET;ORAL
Application: A070142 | Product #001
Applicant: WATSON LABORATORIES INC
Approved: Jul 30, 1985 | RLD: No | RS: No | Type: DISCN